FAERS Safety Report 5049943-9 (Version None)
Quarter: 2006Q3

REPORT INFORMATION
  Report Type: 
  Country: None (occurrence: None)
  Receive Date: 20060706
  Receipt Date: 20060623
  Transmission Date: 20061208
  Serious: No
  Sender: FDA-Public Use
  Company Number: 226644

PATIENT
  Age: 34 Year
  Sex: Female
  Weight: 42.9 kg

DRUGS (5)
  1. OMALIZUMAB (OMALIZUMAB)PWDR + SOLVENT, INJECTION SOLN,150MG [Suspect]
     Indication: ASTHMA
     Dosage: 300 MG, Q2W, SUBCUTANEOUS
     Route: 058
     Dates: start: 20050802
  2. CORTICOSTEROIDS (CORTICOSTEROID NOS) [Concomitant]
  3. MOTRIN [Concomitant]
  4. ASPIRIN [Concomitant]
  5. PAIN MEDICATION (ANALGESIC NOS) [Concomitant]

REACTIONS (7)
  - ABORTION [None]
  - ABORTION SPONTANEOUS [None]
  - BLOOD HUMAN CHORIONIC GONADOTROPIN DECREASED [None]
  - DRUG EXPOSURE BEFORE PREGNANCY [None]
  - DRUG EXPOSURE DURING PREGNANCY [None]
  - MALAISE [None]
  - PREGNANCY [None]
